FAERS Safety Report 5147623-2 (Version None)
Quarter: 2006Q4

REPORT INFORMATION
  Report Type: 
  Country: None (occurrence: None)
  Receive Date: 20061110
  Receipt Date: 20061102
  Transmission Date: 20070319
  Serious: Yes (Life-Threatening)
  Sender: FDA-Public Use
  Company Number: JP-JNJFOC-20061004914

PATIENT
  Sex: Female

DRUGS (9)
  1. ITRIZOLE [Suspect]
     Indication: NAIL TINEA
     Route: 048
     Dates: start: 20061016, end: 20061017
  2. CONIEL [Concomitant]
     Indication: HYPERTENSION
     Route: 048
  3. URSO [Concomitant]
     Indication: HEPATITIS C
     Route: 048
  4. GLYCYRON [Concomitant]
     Indication: HEPATITIS C
     Route: 048
  5. BLOPRESS [Concomitant]
     Indication: HYPERTENSION
     Route: 048
  6. CARDENALIN [Concomitant]
     Indication: HYPERTENSION
     Route: 048
  7. ALDACTONE [Concomitant]
     Indication: HYPERTENSION
     Route: 048
  8. WYTENS [Concomitant]
     Indication: HYPERTENSION
     Route: 048
  9. TENORMIN [Concomitant]
     Indication: HYPERTENSION
     Route: 048

REACTIONS (2)
  - CARDIOGENIC SHOCK [None]
  - OEDEMA [None]
